FAERS Safety Report 7318969-4 (Version None)
Quarter: 2011Q1

REPORT INFORMATION
  Report Type: 
  Country: None (occurrence: None)
  Receive Date: 20110228
  Receipt Date: 20110215
  Transmission Date: 20110831
  Serious: Yes (Hospitalization, Disabling, Other)
  Sender: FDA-Public Use
  Company Number: US-ELI_LILLY_AND_COMPANY-US201102004637

PATIENT
  Age: 51 Year
  Sex: Male

DRUGS (3)
  1. LOMOTIL [Concomitant]
  2. CYMBALTA [Suspect]
     Indication: DEPRESSION
     Dosage: 30 MG, DAILY (1/D)
  3. CYMBALTA [Suspect]
     Dosage: 30 MG, DAILY (1/D)
     Dates: end: 20110101

REACTIONS (7)
  - CORONARY ARTERY OCCLUSION [None]
  - PARAESTHESIA [None]
  - GAIT DISTURBANCE [None]
  - DIZZINESS [None]
  - CORONARY ARTERY DISEASE [None]
  - WITHDRAWAL SYNDROME [None]
  - MOTION SICKNESS [None]
